FAERS Safety Report 22334181 (Version 1)
Quarter: 2023Q2

REPORT INFORMATION
  Report Type: Spontaneous
  Country: DE (occurrence: DE)
  Receive Date: 20230517
  Receipt Date: 20230517
  Transmission Date: 20230721
  Serious: Yes (Other)
  Sender: FDA-Public Use
  Company Number: None

PATIENT
  Age: 63 Year
  Sex: Male
  Weight: 95 kg

DRUGS (7)
  1. ATORVASTATIN [Interacting]
     Active Substance: ATORVASTATIN
     Indication: Thrombosis prophylaxis
     Dosage: 20 MILLIGRAM DAILY; 20 MG IN THE EVENING
     Route: 065
     Dates: start: 20220923, end: 20230415
  2. ATORVASTATIN [Interacting]
     Active Substance: ATORVASTATIN
     Indication: Cerebrovascular accident prophylaxis
  3. ATORVASTATIN [Interacting]
     Active Substance: ATORVASTATIN
     Indication: Ischaemic heart disease prophylaxis
  4. ELIQUIS [Interacting]
     Active Substance: APIXABAN
     Indication: Product used for unknown indication
     Dosage: 10 MILLIGRAM DAILY; 5 MG MORNING AND EVENING
     Route: 065
     Dates: start: 202303
  5. VENLAFAXINE [Concomitant]
     Active Substance: VENLAFAXINE HYDROCHLORIDE
     Indication: Parkinson^s disease
     Dosage: MONDAYS, PROLONGED RELEASE
     Route: 065
  6. PRAMIPEXOLE [Concomitant]
     Active Substance: PRAMIPEXOLE
     Indication: Parkinson^s disease
     Dosage: AT EVENING
  7. PRAMIPEXOLE [Concomitant]
     Active Substance: PRAMIPEXOLE
     Indication: Parkinson^s disease
     Dosage: 0.52 MG PROLONGED RELEASE
     Route: 065

REACTIONS (9)
  - Cardiac fibrillation [Recovered/Resolved]
  - Arrhythmia [Recovered/Resolved]
  - Drug interaction [Unknown]
  - Tongue discomfort [Recovered/Resolved]
  - Dyspnoea [Recovered/Resolved]
  - Anxiety [Recovered/Resolved]
  - Panic disorder [Recovered/Resolved]
  - Cardiovascular disorder [Recovered/Resolved]
  - Dysphagia [Recovered/Resolved]

NARRATIVE: CASE EVENT DATE: 20220923
